FAERS Safety Report 5177800-6 (Version None)
Quarter: 2006Q4

REPORT INFORMATION
  Report Type: 
  Country: None (occurrence: None)
  Receive Date: 20061218
  Receipt Date: 20060725
  Transmission Date: 20070319
  Serious: No
  Sender: FDA-Public Use
  Company Number: US-AMGEN-KDL187783

PATIENT
  Sex: Female

DRUGS (2)
  1. ENBREL [Suspect]
     Indication: PSORIATIC ARTHROPATHY
     Route: 058
     Dates: start: 20040801
  2. CYCLOSPORINE [Concomitant]
     Route: 048
     Dates: start: 20040601

REACTIONS (6)
  - EAR DISCOMFORT [None]
  - INJECTION SITE DISCOMFORT [None]
  - INJECTION SITE REACTION [None]
  - SINUS HEADACHE [None]
  - SINUSITIS [None]
  - TINNITUS [None]
